FAERS Safety Report 11411471 (Version 2)
Quarter: 2015Q3

REPORT INFORMATION
  Report Type: Spontaneous
  Country: US (occurrence: US)
  Receive Date: 20150821
  Receipt Date: 20150903
  Transmission Date: 20151125
  Serious: No
  Sender: FDA-Public Use
  Company Number: US-ELI_LILLY_AND_COMPANY-US201008002723

PATIENT
  Age: 86 Year
  Sex: Female

DRUGS (11)
  1. HUMALOG [Suspect]
     Active Substance: INSULIN LISPRO
     Dosage: 6 U, OTHER
     Dates: start: 20100415
  2. HUMULIN N [Suspect]
     Active Substance: INSULIN HUMAN
     Indication: DIABETES MELLITUS
     Dosage: 5 U, EACH EVENING
     Dates: start: 20100708
  3. HUMALOG [Suspect]
     Active Substance: INSULIN LISPRO
     Dosage: 5 U, EACH EVENING
     Dates: start: 20100415
  4. HUMALOG [Suspect]
     Active Substance: INSULIN LISPRO
     Dosage: 15 U, OTHER
     Dates: start: 20100415
  5. HUMALOG [Suspect]
     Active Substance: INSULIN LISPRO
     Dosage: 5 U, EACH EVENING
     Dates: start: 20100415
  6. HUMALOG [Suspect]
     Active Substance: INSULIN LISPRO
     Indication: DIABETES MELLITUS
     Dosage: 8 U, EACH MORNING
     Dates: start: 20100415
  7. HUMALOG [Suspect]
     Active Substance: INSULIN LISPRO
     Dosage: 15 U, OTHER
     Dates: start: 20100415
  8. HUMALOG [Suspect]
     Active Substance: INSULIN LISPRO
     Dosage: 8 U, UNK
     Dates: start: 20100729, end: 20100729
  9. HUMALOG [Suspect]
     Active Substance: INSULIN LISPRO
     Dosage: 8 U, EACH MORNING
     Dates: start: 20100415
  10. HUMALOG [Suspect]
     Active Substance: INSULIN LISPRO
     Dosage: 6 U, OTHER
     Dates: start: 20100415
  11. NOVOLOG [Concomitant]
     Active Substance: INSULIN ASPART

REACTIONS (7)
  - Blood glucose increased [Unknown]
  - Blood glucose increased [Unknown]
  - Macular degeneration [Unknown]
  - Drug ineffective [Unknown]
  - Anxiety [Unknown]
  - Frustration [Unknown]
  - Fatigue [Unknown]

NARRATIVE: CASE EVENT DATE: 20100415
